FAERS Safety Report 4961745-8 (Version None)
Quarter: 2006Q2

REPORT INFORMATION
  Report Type: 
  Country: None (occurrence: None)
  Receive Date: 20060404
  Receipt Date: 20051227
  Transmission Date: 20061013
  Serious: Yes (Death, Other)
  Sender: FDA-Public Use
  Company Number: PHBS2005JP19053

PATIENT
  Age: 26 Year
  Sex: Male
  Weight: 50 kg

DRUGS (7)
  1. OMEGACIN [Concomitant]
     Dosage: 0.6 G/D
     Route: 041
     Dates: start: 20051206, end: 20051215
  2. ZOVIRAX [Concomitant]
     Dosage: 750 MG/D
     Route: 041
     Dates: end: 20051209
  3. FLUCONAZOLE [Concomitant]
     Dosage: 200 MG/D
     Route: 042
     Dates: start: 20051201, end: 20051210
  4. MORPHINE [Concomitant]
     Dosage: 20 MG/D
     Route: 041
     Dates: start: 20051205, end: 20051210
  5. GRAN [Concomitant]
     Dosage: 450 UG/D
     Route: 041
     Dates: start: 20051206, end: 20051206
  6. LASIX [Concomitant]
     Dosage: 10 MG/D
     Route: 042
     Dates: start: 20051206, end: 20051206
  7. SANDIMMUNE [Suspect]
     Indication: BONE MARROW TRANSPLANT
     Dosage: 3 MG/KG/DAY
     Route: 042
     Dates: start: 20051130, end: 20051215

REACTIONS (3)
  - GRAFT COMPLICATION [None]
  - PNEUMONIA [None]
  - RESPIRATORY FAILURE [None]
